FAERS Safety Report 9088380 (Version 1)
Quarter: 2013Q1

REPORT INFORMATION
  Report Type: Spontaneous
  Country: US (occurrence: US)
  Receive Date: 20130201
  Receipt Date: 20130201
  Transmission Date: 20140127
  Serious: No
  Sender: FDA-Public Use
  Company Number: US-GALDERMA-US-GDP-12415006

PATIENT
  Age: 15 Year
  Sex: Female

DRUGS (3)
  1. EPIDUO [Suspect]
     Indication: ACNE
     Route: 061
     Dates: start: 20120814, end: 20120829
  2. CETAPHIL GENTLE CLEANSING ANTIBACTERIAL BAR [Suspect]
     Indication: THERAPEUTIC SKIN CARE TOPICAL
     Route: 061
     Dates: start: 20120814
  3. DOXYCYCLINE [Suspect]
     Indication: ACNE
     Dates: start: 20120814

REACTIONS (1)
  - Acne [Recovering/Resolving]
